FAERS Safety Report 17358329 (Version 1)
Quarter: 2020Q1

REPORT INFORMATION
  Report Type: Report from Study
  Country: US (occurrence: US)
  Receive Date: 20200201
  Receipt Date: 20200201
  Transmission Date: 20200409
  Serious: Yes (Other)
  Sender: FDA-Public Use
  Company Number: US-ROCHE-2532877

PATIENT
  Sex: Female

DRUGS (2)
  1. XOLAIR [Suspect]
     Active Substance: OMALIZUMAB
     Dosage: INJECT 375MG SUBCUTANEOUSLY EVERY 2 WEEK(S)
     Route: 058
  2. XOLAIR [Suspect]
     Active Substance: OMALIZUMAB
     Indication: ASTHMA
     Route: 058

REACTIONS (7)
  - Acute respiratory failure [Unknown]
  - Rhinitis allergic [Unknown]
  - Pregnancy [Unknown]
  - Stress ulcer [Unknown]
  - Malaise [Unknown]
  - Urticaria [Unknown]
  - Deep vein thrombosis [Unknown]
